FAERS Safety Report 21458026 (Version 3)
Quarter: 2022Q4

REPORT INFORMATION
  Report Type: Spontaneous
  Country: IT (occurrence: IT)
  Receive Date: 20221014
  Receipt Date: 20221120
  Transmission Date: 20230112
  Serious: Yes (Other)
  Sender: FDA-Public Use
  Company Number: IT-NOVARTISPH-NVSC2022IT216323

PATIENT
  Age: 77 Year
  Sex: Female
  Weight: 77 kg

DRUGS (41)
  1. METHYLPREDNISOLONE [Suspect]
     Active Substance: METHYLPREDNISOLONE
     Indication: Diffuse large B-cell lymphoma
     Dosage: 80 MG, (ON 31 AUG 2022 10:40 AM SHE RECEIVED MOST RECENT DOSE 80 MG OF STUDY DRUG METHYPREDNISOLONE
     Route: 042
     Dates: start: 20220629
  2. PREDNISONE [Suspect]
     Active Substance: PREDNISONE
     Indication: Diffuse large B-cell lymphoma
     Dosage: 100 MG, (ON 04 SEP 2022, SHE RECEIVED MOST RECENT DOSE 100 MG OF STUDY DRUG PREDNISONE PRIOR TO AE.0
     Route: 048
     Dates: start: 20220630
  3. CYCLOPHOSPHAMIDE [Suspect]
     Active Substance: CYCLOPHOSPHAMIDE
     Indication: Diffuse large B-cell lymphoma
     Dosage: UNK
     Route: 065
  4. CYCLOPHOSPHAMIDE [Suspect]
     Active Substance: CYCLOPHOSPHAMIDE
     Dosage: 750 MG/M2, TIW (ON 31 AUG 2022 3:30 AM SHE RECEIVED MOST RECENT DOSE 750 MG/M2 OF STUDY DRUG CYCLOPH
     Route: 048
     Dates: start: 20220629
  5. RITUXIMAB [Suspect]
     Active Substance: RITUXIMAB
     Indication: Diffuse large B-cell lymphoma
     Dosage: 375 MG/M2,TIW (ON 20 JUL 2022, SHE RECEIVED MOST RECENT DOSE 375 MGM2 OF STUDY DRUG RITUXIMAB PRIOR
     Route: 042
     Dates: start: 20220629
  6. DOXORUBICIN [Suspect]
     Active Substance: DOXORUBICIN
     Indication: Diffuse large B-cell lymphoma
     Dosage: 50 MG/M2, TIW (ON 31 AUG 2022 4:35 PM, SHE RECEIVED MOST RECENT DOSE 50 MG/M2 OF STUDY DRUG DOXORUBI
     Route: 048
     Dates: start: 20220629
  7. POLATUZUMAB VEDOTIN [Suspect]
     Active Substance: POLATUZUMAB VEDOTIN
     Indication: Diffuse large B-cell lymphoma
     Dosage: 160 MG (ON 20 JUL 2022, SHE RECEIVED MOST RECENT DOSE 138.6 MG OF STUDY DRUG POLATUZUMAB VEDOTIN PRI
     Route: 042
     Dates: start: 20220629
  8. VINCRISTINE SULFATE [Suspect]
     Active Substance: VINCRISTINE SULFATE
     Indication: Diffuse large B-cell lymphoma
     Dosage: UNK
     Route: 042
  9. DEXAMETHASONE [Concomitant]
     Active Substance: DEXAMETHASONE
     Indication: Product used for unknown indication
     Dosage: 20 MG
     Route: 065
     Dates: start: 20220727, end: 20220727
  10. DEXAMETHASONE [Concomitant]
     Active Substance: DEXAMETHASONE
     Dosage: 5 MG, QD
     Route: 065
     Dates: start: 20220817, end: 20220817
  11. PANTOPRAZOLE [Concomitant]
     Active Substance: PANTOPRAZOLE
     Indication: Product used for unknown indication
     Dosage: 40 MG
     Route: 065
     Dates: start: 20220623, end: 20220705
  12. PANTOPRAZOLE [Concomitant]
     Active Substance: PANTOPRAZOLE
     Dosage: 40 MG
     Route: 065
     Dates: start: 20220629, end: 20220629
  13. PANTOPRAZOLE [Concomitant]
     Active Substance: PANTOPRAZOLE
     Dosage: 40 MG
     Route: 065
     Dates: start: 20220705
  14. PANTOPRAZOLE [Concomitant]
     Active Substance: PANTOPRAZOLE
     Dosage: 40 MG
     Route: 065
     Dates: start: 20220720, end: 20220720
  15. PANTOPRAZOLE [Concomitant]
     Active Substance: PANTOPRAZOLE
     Dosage: 40 MG
     Route: 065
     Dates: start: 20220727, end: 20220727
  16. PANTOPRAZOLE [Concomitant]
     Active Substance: PANTOPRAZOLE
     Dosage: 40 MG
     Route: 065
     Dates: start: 20220810, end: 20220810
  17. PANTOPRAZOLE [Concomitant]
     Active Substance: PANTOPRAZOLE
     Dosage: 40 MG
     Route: 065
     Dates: start: 20220817, end: 20220817
  18. PANTOPRAZOLE [Concomitant]
     Active Substance: PANTOPRAZOLE
     Dosage: 40 MG
     Route: 065
     Dates: start: 20220831, end: 20220831
  19. ACYCLOVIR [Concomitant]
     Active Substance: ACYCLOVIR
     Indication: Product used for unknown indication
     Dosage: 400 MG
     Route: 065
     Dates: start: 20220706
  20. ACETAMINOPHEN [Concomitant]
     Active Substance: ACETAMINOPHEN
     Indication: Product used for unknown indication
     Dosage: 1000 MG
     Route: 065
     Dates: start: 20220629, end: 20220629
  21. ACETAMINOPHEN [Concomitant]
     Active Substance: ACETAMINOPHEN
     Dosage: 1000 MG
     Route: 065
     Dates: start: 20220720, end: 20220720
  22. ACETAMINOPHEN [Concomitant]
     Active Substance: ACETAMINOPHEN
     Dosage: 1000 MG, QD
     Route: 065
     Dates: start: 20220817, end: 20220817
  23. ACETAMINOPHEN [Concomitant]
     Active Substance: ACETAMINOPHEN
     Dosage: 1000 MG, QD
     Route: 065
     Dates: start: 20220831, end: 20220831
  24. PALONOSETRON [Concomitant]
     Active Substance: PALONOSETRON
     Indication: Product used for unknown indication
     Dosage: 0.5 MG
     Route: 065
     Dates: start: 20220629, end: 20220629
  25. PALONOSETRON [Concomitant]
     Active Substance: PALONOSETRON
     Dosage: 0.5 MG
     Route: 065
     Dates: start: 20220720, end: 20220720
  26. PALONOSETRON [Concomitant]
     Active Substance: PALONOSETRON
     Dosage: UNK, QD
     Route: 065
     Dates: start: 20220831, end: 20220831
  27. PALONOSETRON [Concomitant]
     Active Substance: PALONOSETRON
     Dosage: UNK, QD
     Route: 065
     Dates: start: 20220810, end: 20220810
  28. ENOXAPARIN SODIUM [Concomitant]
     Active Substance: ENOXAPARIN SODIUM
     Indication: Product used for unknown indication
     Dosage: 6000 IU
     Route: 065
     Dates: start: 20220701, end: 20220704
  29. ENOXAPARIN SODIUM [Concomitant]
     Active Substance: ENOXAPARIN SODIUM
     Dosage: 6000 IU
     Route: 065
     Dates: start: 20220719, end: 20220721
  30. ENOXAPARIN SODIUM [Concomitant]
     Active Substance: ENOXAPARIN SODIUM
     Indication: Product used for unknown indication
     Dosage: 4000 IU
     Route: 065
     Dates: start: 20220705, end: 20220718
  31. ENOXAPARIN SODIUM [Concomitant]
     Active Substance: ENOXAPARIN SODIUM
     Dosage: 4000 IU
     Route: 065
     Dates: start: 20220722
  32. CHLORPHENIRAMINE MALEATE [Concomitant]
     Active Substance: CHLORPHENIRAMINE MALEATE
     Indication: Product used for unknown indication
     Dosage: 10 MG
     Route: 065
     Dates: start: 20220629, end: 20220629
  33. CHLORPHENIRAMINE MALEATE [Concomitant]
     Active Substance: CHLORPHENIRAMINE MALEATE
     Dosage: 5 MG
     Route: 065
     Dates: start: 20220720, end: 20220720
  34. CHLORPHENIRAMINE MALEATE [Concomitant]
     Active Substance: CHLORPHENIRAMINE MALEATE
     Dosage: UNK
     Route: 065
     Dates: start: 20220727, end: 20220727
  35. CHLORPHENIRAMINE MALEATE [Concomitant]
     Active Substance: CHLORPHENIRAMINE MALEATE
     Dosage: 5 MG
     Route: 065
     Dates: start: 20220810, end: 20220810
  36. CHLORPHENIRAMINE MALEATE [Concomitant]
     Active Substance: CHLORPHENIRAMINE MALEATE
     Dosage: 5 MG
     Route: 065
     Dates: start: 20220817, end: 20220817
  37. CHLORPHENIRAMINE MALEATE [Concomitant]
     Active Substance: CHLORPHENIRAMINE MALEATE
     Dosage: 5 MG
     Route: 065
     Dates: start: 20220831, end: 20220831
  38. FASTURTEC [Concomitant]
     Active Substance: RASBURICASE
     Indication: Product used for unknown indication
     Dosage: 7.5 MG
     Route: 065
     Dates: start: 20220629, end: 20220704
  39. FASTURTEC [Concomitant]
     Active Substance: RASBURICASE
     Dosage: 7.5 MG
     Route: 065
     Dates: start: 20220721, end: 20220721
  40. MYCOSTATIN [Concomitant]
     Active Substance: NYSTATIN
     Indication: Product used for unknown indication
     Dosage: UNK
     Route: 065
     Dates: start: 20220705
  41. CEFIXIME [Concomitant]
     Active Substance: CEFIXIME
     Indication: Product used for unknown indication
     Dosage: 400 MG
     Route: 065
     Dates: start: 20220705, end: 20220709

REACTIONS (3)
  - Neutropenia [Not Recovered/Not Resolved]
  - Neutropenia [Recovered/Resolved]
  - Neutropenia [Recovered/Resolved]

NARRATIVE: CASE EVENT DATE: 20220729
